FAERS Safety Report 8839187 (Version 2)
Quarter: 2012Q4

REPORT INFORMATION
  Report Type: Report from Study
  Country: NL (occurrence: NL)
  Receive Date: 20121015
  Receipt Date: 20121109
  Transmission Date: 20130627
  Serious: Yes (Hospitalization, Other)
  Sender: FDA-Public Use
  Company Number: NL-GENZYME-CLOF-1002295

PATIENT
  Age: 59 Year
  Sex: Female
  Weight: 64 kg

DRUGS (5)
  1. EVOLTRA [Suspect]
     Indication: ACUTE MYELOID LEUKAEMIA
     Dosage: 18 mg, UNK, d2,d4,d6,d8,d10 remession induction
     Route: 042
     Dates: start: 20120429
  2. CYTARABINE ARABINOSIDE [Suspect]
     Indication: ACUTE MYELOID LEUKAEMIA
     Dosage: 180 mg, UNK, d1 to d10, remission induction
     Route: 042
     Dates: start: 20120428
  3. CYTARABINE ARABINOSIDE [Suspect]
     Dosage: 850 mg, bid, every 12 hrs on d1 to d6 consolidation
     Route: 042
     Dates: start: 20120613
  4. IDARUBICIN [Suspect]
     Indication: ACUTE MYELOID LEUKAEMIA
     Dosage: 18 mg, d1,d3,d5, remission induction
     Route: 042
     Dates: start: 20120428
  5. IDARUBICIN [Suspect]
     Dosage: 17 mg, UNK, d4,d5, d6, consolidation
     Route: 042
     Dates: start: 20120616

REACTIONS (6)
  - Atelectasis [Unknown]
  - Angiopathy [Unknown]
  - Pleural effusion [Unknown]
  - Acute myeloid leukaemia recurrent [Not Recovered/Not Resolved]
  - Pyrexia [Recovered/Resolved]
  - Back pain [Not Recovered/Not Resolved]
